FAERS Safety Report 9909001 (Version 1)
Quarter: 2014Q1

REPORT INFORMATION
  Report Type: Spontaneous
  Country: US (occurrence: US)
  Receive Date: 20140219
  Receipt Date: 20140219
  Transmission Date: 20141002
  Serious: Yes (Death)
  Sender: FDA-Public Use
  Company Number: US-BANPHARM-20142189

PATIENT
  Age: 58 Year
  Sex: Male

DRUGS (6)
  1. NAPROXEN UNKNOWN PRODUCT [Suspect]
     Route: 048
  2. TRANDOLAPRIL/VERAPAMIL [Suspect]
  3. SILDENAFIL [Concomitant]
  4. FENOFIBRIC ACID [Concomitant]
  5. ALPRAZOLAM [Concomitant]
  6. OMEPRAZOLE [Concomitant]

REACTIONS (2)
  - Completed suicide [Fatal]
  - Death [Fatal]
